FAERS Safety Report 22897759 (Version 2)
Quarter: 2024Q3

REPORT INFORMATION
  Report Type: Report from Study
  Country: DE (occurrence: DE)
  Receive Date: 20230902
  Receipt Date: 20240816
  Transmission Date: 20241017
  Serious: No
  Sender: SANDOZ
  Company Number: DE-SANDOZ-SDZ2023DE021915

PATIENT
  Age: 58 Year
  Sex: Male

DRUGS (1)
  1. FILGRASTIM [Suspect]
     Active Substance: FILGRASTIM
     Indication: Product used for unknown indication
     Dosage: 4320 UG
     Route: 058
     Dates: start: 20130411, end: 20130415

REACTIONS (2)
  - COVID-19 [Recovered/Resolved]
  - Psoriasis [Not Recovered/Not Resolved]

NARRATIVE: CASE EVENT DATE: 20220701
